FAERS Safety Report 20665773 (Version 1)
Quarter: 2022Q2

REPORT INFORMATION
  Report Type: Report from Study
  Country: IT (occurrence: IT)
  Receive Date: 20220402
  Receipt Date: 20220402
  Transmission Date: 20220720
  Serious: Yes (Other)
  Sender: FDA-Public Use
  Company Number: IT-CELGENE-ITA-20220108043

PATIENT
  Age: 75 Year
  Sex: Male

DRUGS (33)
  1. REVLIMID [Suspect]
     Active Substance: LENALIDOMIDE
     Indication: Plasma cell myeloma
     Dosage: 25 MILLIGRAM
     Route: 048
     Dates: start: 20190121, end: 20190211
  2. REVLIMID [Suspect]
     Active Substance: LENALIDOMIDE
     Dosage: 25 MILLIGRAM
     Route: 048
     Dates: start: 20190225, end: 20190317
  3. REVLIMID [Suspect]
     Active Substance: LENALIDOMIDE
     Dosage: 25 MILLIGRAM
     Route: 048
     Dates: start: 20190327, end: 20190416
  4. REVLIMID [Suspect]
     Active Substance: LENALIDOMIDE
     Dosage: 25 MILLIGRAM
     Route: 048
     Dates: start: 20190429, end: 20190519
  5. REVLIMID [Suspect]
     Active Substance: LENALIDOMIDE
     Dates: start: 20210712, end: 20210718
  6. REVLIMID [Suspect]
     Active Substance: LENALIDOMIDE
     Route: 048
     Dates: start: 20210719, end: 20210808
  7. REVLIMID [Suspect]
     Active Substance: LENALIDOMIDE
     Dates: start: 20210809, end: 20210815
  8. REVLIMID [Suspect]
     Active Substance: LENALIDOMIDE
     Dates: start: 20210816, end: 20210916
  9. REVLIMID [Suspect]
     Active Substance: LENALIDOMIDE
     Route: 048
     Dates: start: 20210917, end: 20211007
  10. REVLIMID [Suspect]
     Active Substance: LENALIDOMIDE
     Dates: start: 20211008, end: 20211013
  11. REVLIMID [Suspect]
     Active Substance: LENALIDOMIDE
     Route: 048
     Dates: start: 20211118, end: 20211208
  12. REVLIMID [Suspect]
     Active Substance: LENALIDOMIDE
     Dates: start: 20211209, end: 20211215
  13. REVLIMID [Suspect]
     Active Substance: LENALIDOMIDE
     Dates: start: 20211216, end: 20211220
  14. REVLIMID [Suspect]
     Active Substance: LENALIDOMIDE
     Route: 048
     Dates: start: 20211221, end: 20220110
  15. REVLIMID [Suspect]
     Active Substance: LENALIDOMIDE
     Dates: start: 20220111, end: 20220117
  16. REVLIMID [Suspect]
     Active Substance: LENALIDOMIDE
     Dates: start: 20220118, end: 20220121
  17. DEXAMETHASONE [Suspect]
     Active Substance: DEXAMETHASONE
     Indication: Plasma cell myeloma
     Dosage: 5.7143 MILLIGRAM
     Route: 048
     Dates: start: 20190121, end: 20190212
  18. DEXAMETHASONE [Suspect]
     Active Substance: DEXAMETHASONE
     Dosage: 5.7143 MILLIGRAM
     Route: 048
     Dates: start: 20190225, end: 20190318
  19. DEXAMETHASONE [Suspect]
     Active Substance: DEXAMETHASONE
     Dosage: 5.7143 MILLIGRAM
     Route: 048
     Dates: start: 20190327, end: 20190417
  20. DEXAMETHASONE [Suspect]
     Active Substance: DEXAMETHASONE
     Dosage: 5.7143 MILLIGRAM
     Route: 048
     Dates: start: 20190429, end: 20190520
  21. DEXAMETHASONE [Suspect]
     Active Substance: DEXAMETHASONE
     Dates: start: 20210707, end: 20210718
  22. DEXAMETHASONE [Suspect]
     Active Substance: DEXAMETHASONE
     Route: 048
     Dates: start: 20210719, end: 20210809
  23. DEXAMETHASONE [Suspect]
     Active Substance: DEXAMETHASONE
     Dates: start: 20210810, end: 20210815
  24. DEXAMETHASONE [Suspect]
     Active Substance: DEXAMETHASONE
     Dates: start: 20210816, end: 20210916
  25. DEXAMETHASONE [Suspect]
     Active Substance: DEXAMETHASONE
     Route: 048
     Dates: start: 20210917, end: 20211008
  26. DEXAMETHASONE [Suspect]
     Active Substance: DEXAMETHASONE
     Dates: start: 20211009, end: 20211013
  27. DEXAMETHASONE [Suspect]
     Active Substance: DEXAMETHASONE
     Dates: start: 20211014, end: 20211117
  28. DEXAMETHASONE [Suspect]
     Active Substance: DEXAMETHASONE
     Route: 048
     Dates: start: 20211118, end: 20211209
  29. DEXAMETHASONE [Suspect]
     Active Substance: DEXAMETHASONE
     Dates: start: 20211210, end: 20211215
  30. DEXAMETHASONE [Suspect]
     Active Substance: DEXAMETHASONE
     Dates: start: 20211216, end: 20211220
  31. DEXAMETHASONE [Suspect]
     Active Substance: DEXAMETHASONE
     Route: 048
     Dates: start: 20211221, end: 20220111
  32. DEXAMETHASONE [Suspect]
     Active Substance: DEXAMETHASONE
     Dates: start: 20220112, end: 20220118
  33. DEXAMETHASONE [Suspect]
     Active Substance: DEXAMETHASONE
     Dates: start: 20220119, end: 20220121

REACTIONS (3)
  - Haematochezia [Recovered/Resolved]
  - Eczema [Recovered/Resolved]
  - Diarrhoea [Recovered/Resolved]

NARRATIVE: CASE EVENT DATE: 20211014
